FAERS Safety Report 10229632 (Version 1)
Quarter: 2014Q2

REPORT INFORMATION
  Report Type: Spontaneous
  Country: US (occurrence: None)
  Receive Date: 20140609
  Receipt Date: 20140609
  Transmission Date: 20141212
  Serious: Yes (Other)
  Sender: FDA-Public Use
  Company Number: SYM-2014-21680

PATIENT
  Age: 53 Year
  Sex: Female
  Weight: 86.18 kg

DRUGS (5)
  1. XENAZINE [Suspect]
     Indication: HUNTINGTON^S DISEASE
     Dosage: ONE TABLET IN THE MORNING AND ONE TABLET IN THE EVENING, 2 IN 1 D, ORAL
     Route: 048
     Dates: start: 20140415
  2. METHOTREXATE (METHOTREXATE) [Concomitant]
  3. FOLIC ACID (FOLIC ACID) [Concomitant]
  4. CITALOPRAM (CITALOPRAM) [Concomitant]
  5. LISINOPRIL DIHYDRATE (LISINOPRIL DIHYDRATE) [Concomitant]

REACTIONS (2)
  - Crying [None]
  - Suicidal ideation [None]
